FAERS Safety Report 7679545-7 (Version None)
Quarter: 2011Q3

REPORT INFORMATION
  Report Type: 
  Country: None (occurrence: None)
  Receive Date: 20110812
  Receipt Date: 20110809
  Transmission Date: 20111222
  Serious: Yes (Hospitalization, Other)
  Sender: FDA-Public Use
  Company Number: FR-BRISTOL-MYERS SQUIBB COMPANY-15963531

PATIENT
  Age: 75 Year
  Sex: Male

DRUGS (1)
  1. SPRYCEL [Suspect]
     Indication: CHRONIC MYELOID LEUKAEMIA
     Dosage: INTERRUPTED,RESTARTED ON 8JUL11;50MG PER DAY
     Dates: start: 20110201

REACTIONS (3)
  - GLAUCOMA [None]
  - HYPERPLASIA [None]
  - PLEURAL EFFUSION [None]
